FAERS Safety Report 4308928-8 (Version None)
Quarter: 2004Q1

REPORT INFORMATION
  Report Type: 
  Country: None (occurrence: None)
  Receive Date: 20040227
  Receipt Date: 20040217
  Transmission Date: 20041129
  Serious: Yes (Hospitalization, Other)
  Sender: FDA-Public Use
  Company Number: 2004200310US

PATIENT
  Age: 56 Year
  Sex: Female

DRUGS (4)
  1. HEPARIN SODIUM INJECTION [Suspect]
     Indication: THROMBOSIS PROPHYLAXIS
     Dosage: PARENTERAL
     Route: 051
  2. WARFARIN SODIUM [Concomitant]
  3. LOPERAMIDE HCL [Concomitant]
  4. VANCOMYCIN [Concomitant]

REACTIONS (11)
  - ABDOMINAL PAIN [None]
  - ANTIPHOSPHOLIPID ANTIBODIES [None]
  - BLOOD CREATINE INCREASED [None]
  - DEEP VEIN THROMBOSIS [None]
  - HEPARIN-INDUCED THROMBOCYTOPENIA [None]
  - HYPONATRAEMIA [None]
  - HYPOTENSION [None]
  - INTERNATIONAL NORMALISED RATIO INCREASED [None]
  - SEPSIS [None]
  - TACHYCARDIA [None]
  - TACHYPNOEA [None]
